FAERS Safety Report 9371909 (Version 2)
Quarter: 2013Q4

REPORT INFORMATION
  Report Type: Spontaneous
  Country: US (occurrence: US)
  Receive Date: 20130627
  Receipt Date: 20131001
  Transmission Date: 20140711
  Serious: Yes (Death, Hospitalization, Other)
  Sender: FDA-Public Use
  Company Number: US-ELI_LILLY_AND_COMPANY-US201306006001

PATIENT
  Age: 61 Year
  Sex: Female
  Weight: 79.36 kg

DRUGS (2)
  1. HUMALOG LISPRO [Suspect]
     Dosage: UNK
     Route: 058
  2. PREDNISONE [Concomitant]
     Dosage: UNK

REACTIONS (9)
  - Death [Fatal]
  - Loss of consciousness [Recovered/Resolved]
  - Concussion [Unknown]
  - Facial bones fracture [Unknown]
  - Blood glucose decreased [Unknown]
  - Renal disorder [Not Recovered/Not Resolved]
  - Haemoptysis [Unknown]
  - Blood glucose increased [Recovering/Resolving]
  - Fall [Unknown]
